FAERS Safety Report 17308181 (Version 1)
Quarter: 2020Q1

REPORT INFORMATION
  Report Type: Spontaneous
  Country: BR (occurrence: BR)
  Receive Date: 20200123
  Receipt Date: 20200123
  Transmission Date: 20200409
  Serious: Yes (Other)
  Sender: FDA-Public Use
  Company Number: NVSC2020BR014146

PATIENT
  Sex: Male
  Weight: 50 kg

DRUGS (2)
  1. LOSARTAN. [Suspect]
     Active Substance: LOSARTAN
     Indication: HYPERTENSION
     Dosage: 1 DF, QD
     Route: 048
  2. NOOTROPIL [Concomitant]
     Active Substance: PIRACETAM
     Indication: BRAIN HYPOXIA
     Dosage: 2 DF, QD
     Route: 048

REACTIONS (6)
  - Glaucoma [Unknown]
  - Hypertension [Unknown]
  - Depression [Recovered/Resolved]
  - Haemorrhagic stroke [Unknown]
  - Tremor [Unknown]
  - Insomnia [Recovered/Resolved]
